FAERS Safety Report 9060971 (Version 3)
Quarter: 2013Q3

REPORT INFORMATION
  Report Type: Spontaneous
  Country: US (occurrence: US)
  Receive Date: 20130213
  Receipt Date: 20130819
  Transmission Date: 20140515
  Serious: No
  Sender: FDA-Public Use
  Company Number: US-009507513-1302USA003949

PATIENT
  Age: 17 Year
  Sex: Female
  Weight: 77.98 kg

DRUGS (1)
  1. NUVARING [Suspect]
     Indication: CONTRACEPTION
     Dosage: ONE RING MONTHLY
     Route: 067

REACTIONS (2)
  - Product quality issue [Unknown]
  - Device expulsion [Unknown]
